FAERS Safety Report 21365107 (Version 2)
Quarter: 2022Q4

REPORT INFORMATION
  Report Type: Spontaneous
  Country: US (occurrence: US)
  Receive Date: 20220922
  Receipt Date: 20221007
  Transmission Date: 20230113
  Serious: No
  Sender: FDA-Public Use
  Company Number: US-PFIZER INC-PV202200067375

PATIENT
  Age: 79 Year
  Sex: Female
  Weight: 59.42 kg

DRUGS (2)
  1. XELJANZ [Suspect]
     Active Substance: TOFACITINIB CITRATE
     Indication: Rheumatoid arthritis
     Dosage: 5 MG, 1X/DAY
  2. DRONEDARONE [Concomitant]
     Active Substance: DRONEDARONE
     Indication: Palpitations
     Dosage: 400 MG, 2X/DAY

REACTIONS (3)
  - Arthralgia [Unknown]
  - Pain in extremity [Unknown]
  - Pain [Unknown]
